FAERS Safety Report 17958715 (Version 1)
Quarter: 2020Q2

REPORT INFORMATION
  Report Type: Spontaneous
  Country: US (occurrence: US)
  Receive Date: 20200629
  Receipt Date: 20200629
  Transmission Date: 20200714
  Serious: No
  Sender: FDA-Public Use
  Company Number: US-PFIZER INC-2020246544

PATIENT
  Age: 68 Year
  Sex: Female
  Weight: 77.56 kg

DRUGS (1)
  1. LATANOPROST. [Suspect]
     Active Substance: LATANOPROST
     Indication: GLAUCOMA
     Dosage: 2 DROP, 1X/DAY (INSTILL ONE DROP IN BOTH EYES AT BEDTIME)
     Route: 047
     Dates: start: 20200316

REACTIONS (3)
  - Product odour abnormal [Unknown]
  - Product taste abnormal [Unknown]
  - Eye irritation [Unknown]

NARRATIVE: CASE EVENT DATE: 20200619
